FAERS Safety Report 7719495-0 (Version None)
Quarter: 2011Q3

REPORT INFORMATION
  Report Type: 
  Country: None (occurrence: None)
  Receive Date: 20110830
  Receipt Date: 20110819
  Transmission Date: 20111222
  Serious: Yes (Hospitalization)
  Sender: FDA-Public Use
  Company Number: US-ELI_LILLY_AND_COMPANY-US201108006404

PATIENT
  Age: 56 Year
  Sex: Male

DRUGS (2)
  1. HUMULIN R [Suspect]
     Indication: DIABETES MELLITUS
     Dosage: 70 U, EACH MORNING
  2. HUMULIN R [Suspect]
     Dosage: 60 U, EACH EVENING

REACTIONS (3)
  - INCORRECT DOSE ADMINISTERED [None]
  - HYPOGLYCAEMIA [None]
  - ACCIDENTAL OVERDOSE [None]
